FAERS Safety Report 4756660-9 (Version None)
Quarter: 2005Q3

REPORT INFORMATION
  Report Type: 
  Country: None (occurrence: None)
  Receive Date: 20050830
  Receipt Date: 20050826
  Transmission Date: 20060218
  Serious: Yes (Disabling)
  Sender: FDA-Public Use
  Company Number: US-GLAXOSMITHKLINE-A0571987A

PATIENT
  Sex: Female

DRUGS (13)
  1. REQUIP [Suspect]
     Indication: RESTLESS LEGS SYNDROME
     Dosage: 1MG PER DAY
     Route: 048
     Dates: start: 20050801, end: 20050823
  2. CARDURA [Concomitant]
  3. ATENOLOL [Concomitant]
  4. VERAPAMIL [Concomitant]
  5. PREVACID [Concomitant]
  6. HYDROCHLOROTHIAZIDE [Concomitant]
  7. LEXAPRO [Concomitant]
  8. LEVOXYL [Concomitant]
  9. OXYCODONE [Concomitant]
  10. PRAVACHOL [Concomitant]
  11. QUININE SULFATE [Concomitant]
  12. AMBIEN [Concomitant]
  13. FOSAMAX [Concomitant]

REACTIONS (2)
  - AMNESIA [None]
  - CONFUSIONAL STATE [None]
